FAERS Safety Report 8417587-4 (Version None)
Quarter: 2012Q2

REPORT INFORMATION
  Report Type: 
  Country: None (occurrence: None)
  Receive Date: 20120606
  Receipt Date: 20120531
  Transmission Date: 20120825
  Serious: Yes (Other)
  Sender: FDA-Public Use
  Company Number: CHPA2012US010465

PATIENT
  Age: 72 Year
  Sex: Male

DRUGS (2)
  1. PERCOCET [Concomitant]
  2. PERDIEM OVERNIGHT RELIEF PILLS [Suspect]
     Indication: CONSTIPATION
     Dosage: 3 DF, QHS
     Route: 048

REACTIONS (5)
  - DRUG INEFFECTIVE [None]
  - INCORRECT DRUG ADMINISTRATION DURATION [None]
  - PROSTATE CANCER [None]
  - INCORRECT DOSE ADMINISTERED [None]
  - EXPIRED DRUG ADMINISTERED [None]
